FAERS Safety Report 16421350 (Version 1)
Quarter: 2019Q2

REPORT INFORMATION
  Report Type: Spontaneous
  Country: US (occurrence: US)
  Receive Date: 20190612
  Receipt Date: 20190612
  Transmission Date: 20190711
  Serious: Yes (Hospitalization)
  Sender: FDA-Public Use
  Company Number: US-VERTEX PHARMACEUTICALS-2019-005378

PATIENT
  Age: 28 Year
  Sex: Female

DRUGS (7)
  1. TOBI [Concomitant]
     Active Substance: TOBRAMYCIN
  2. AMITRIPTYLIN [Concomitant]
     Active Substance: AMITRIPTYLINE
  3. SYMDEKO [Suspect]
     Active Substance: IVACAFTOR\TEZACAFTOR
     Indication: CYSTIC FIBROSIS
     Dosage: 100MG TEZACAFTOR/150MG IVACAFTOR AM; 150MG IVACAFTOR PM
     Route: 048
     Dates: start: 20180802
  4. PULMOZYME [Concomitant]
     Active Substance: DORNASE ALFA
  5. SUMATRIPTAN. [Concomitant]
     Active Substance: SUMATRIPTAN
  6. REPLESTA [Concomitant]
     Active Substance: CHOLECALCIFEROL
  7. ALBUTEROL                          /00139501/ [Concomitant]
     Active Substance: ALBUTEROL

REACTIONS (1)
  - Infective pulmonary exacerbation of cystic fibrosis [Unknown]

NARRATIVE: CASE EVENT DATE: 20190522
